FAERS Safety Report 11359977 (Version 1)
Quarter: 2015Q3

REPORT INFORMATION
  Report Type: Spontaneous
  Country: RO (occurrence: RO)
  Receive Date: 20150810
  Receipt Date: 20150810
  Transmission Date: 20151125
  Serious: Yes (Hospitalization, Other)
  Sender: FDA-Public Use
  Company Number: RO-ROCHE-1618632

PATIENT
  Age: 39 Year
  Sex: Female

DRUGS (2)
  1. DOCETAXEL. [Concomitant]
     Active Substance: DOCETAXEL
  2. TRASTUZUMAB [Suspect]
     Active Substance: TRASTUZUMAB
     Indication: BREAST CANCER METASTATIC
     Route: 065

REACTIONS (6)
  - Hydrothorax [Recovered/Resolved]
  - Cardiomyopathy [Recovered/Resolved]
  - Anaemia [Recovered/Resolved]
  - Cardiac failure [Recovered/Resolved]
  - Tricuspid valve incompetence [Recovered/Resolved]
  - Mitral valve incompetence [Recovered/Resolved]
